FAERS Safety Report 16485131 (Version 2)
Quarter: 2019Q3

REPORT INFORMATION
  Report Type: Spontaneous
  Country: DE (occurrence: DE)
  Receive Date: 20190627
  Receipt Date: 20190704
  Transmission Date: 20191004
  Serious: Yes (Life-Threatening, Hospitalization, Other)
  Sender: FDA-Public Use
  Company Number: DE-HIKMA PHARMACEUTICALS USA INC.-DE-H14001-19-04015

PATIENT
  Age: 31 Year
  Sex: Male
  Weight: 92 kg

DRUGS (1)
  1. ACICLOVIR HIKMA [Suspect]
     Active Substance: ACYCLOVIR SODIUM
     Indication: HERPES ZOSTER
     Route: 042
     Dates: start: 20190605, end: 20190607

REACTIONS (6)
  - Drug eruption [Recovered/Resolved]
  - Acute kidney injury [Recovered/Resolved]
  - Hepatitis [Recovered/Resolved]
  - Rash [Unknown]
  - Nephritis allergic [Recovered/Resolved]
  - Tubulointerstitial nephritis [Recovered/Resolved]

NARRATIVE: CASE EVENT DATE: 20190607
